FAERS Safety Report 22062726 (Version 1)
Quarter: 2023Q1

REPORT INFORMATION
  Report Type: Spontaneous
  Country: CN (occurrence: CN)
  Receive Date: 20230306
  Receipt Date: 20230306
  Transmission Date: 20230417
  Serious: Yes (Other)
  Sender: FDA-Public Use
  Company Number: CN-009507513-2302CHN007863

PATIENT
  Age: 72 Year
  Sex: Male
  Weight: 47 kg

DRUGS (2)
  1. IMIPENEM AND CILASTATIN [Suspect]
     Active Substance: CILASTATIN SODIUM\IMIPENEM
     Indication: Pseudomonas infection
     Dosage: 1 GRAM, TWICE A DAY (Q12H)
     Route: 041
  2. PIPERACILLIN SODIUM\SULBACTAM SODIUM [Concomitant]
     Active Substance: PIPERACILLIN SODIUM\SULBACTAM SODIUM
     Indication: Anti-infective therapy

REACTIONS (2)
  - Epilepsy [Recovered/Resolved]
  - Incorrect dose administered [Unknown]
